FAERS Safety Report 23887586 (Version 3)
Quarter: 2025Q1

REPORT INFORMATION
  Report Type: Report from Study
  Country: US (occurrence: US)
  Receive Date: 20240523
  Receipt Date: 20250130
  Transmission Date: 20250409
  Serious: No
  Sender: ABBVIE
  Company Number: US-ABBVIE-5770120

PATIENT
  Age: 73 Year
  Sex: Female

DRUGS (3)
  1. BOTOX [Suspect]
     Active Substance: ONABOTULINUMTOXINA
     Indication: Migraine
     Route: 065
     Dates: start: 20241204, end: 20241204
  2. QULIPTA [Suspect]
     Active Substance: ATOGEPANT
     Indication: Migraine
     Route: 048
     Dates: start: 202405
  3. UBRELVY [Suspect]
     Active Substance: UBROGEPANT
     Indication: Migraine
     Route: 048

REACTIONS (10)
  - Migraine [Unknown]
  - Nausea [Unknown]
  - Dizziness [Unknown]
  - Arthralgia [Unknown]
  - Thinking abnormal [Unknown]
  - Tendonitis [Unknown]
  - Muscle tightness [Unknown]
  - Tinnitus [Unknown]
  - Therapeutic product effect incomplete [Unknown]
  - Adverse drug reaction [Unknown]

NARRATIVE: CASE EVENT DATE: 20240501
